FAERS Safety Report 17771540 (Version 1)
Quarter: 2020Q2

REPORT INFORMATION
  Report Type: Spontaneous
  Country: CA (occurrence: CA)
  Receive Date: 20200512
  Receipt Date: 20200512
  Transmission Date: 20200714
  Serious: Yes (Other)
  Sender: FDA-Public Use
  Company Number: CA-009507513-2005CAN002831

PATIENT
  Sex: Male

DRUGS (1)
  1. EZETROL [Suspect]
     Active Substance: EZETIMIBE
     Indication: BLOOD CHOLESTEROL
     Route: 065

REACTIONS (7)
  - Dry mouth [Unknown]
  - Anaphylactic reaction [Unknown]
  - Chapped lips [Unknown]
  - Rash [Unknown]
  - Angioedema [Unknown]
  - Urticaria [Unknown]
  - Lip swelling [Unknown]
